FAERS Safety Report 9350655 (Version 3)
Quarter: 2013Q3

REPORT INFORMATION
  Report Type: Spontaneous
  Country: MX (occurrence: MX)
  Receive Date: 20130617
  Receipt Date: 20130717
  Transmission Date: 20140515
  Serious: Yes (Life-Threatening, Hospitalization, Other)
  Sender: FDA-Public Use
  Company Number: MX-GENZYME-CERZ-1002792

PATIENT
  Age: 22 Month
  Sex: Female
  Weight: 7.5 kg

DRUGS (9)
  1. CEREZYME [Suspect]
     Indication: GAUCHER^S DISEASE
     Dosage: 120 IU/KG, Q2W
     Route: 042
     Dates: start: 2007
  2. CEFOTAXIME [Suspect]
     Indication: LUNG INFILTRATION
     Dosage: 150 MG/KG, QD
     Route: 042
  3. CEFOTAXIME [Suspect]
     Indication: RESPIRATORY TRACT INFECTION
  4. CIPROFLOXACIN [Suspect]
     Indication: LUNG INFILTRATION
     Dosage: 30 MG/KG, QD
     Route: 042
  5. CIPROFLOXACIN [Suspect]
     Indication: RESPIRATORY TRACT INFECTION
  6. DICLOXACILLIN [Concomitant]
     Indication: LUNG INFILTRATION
     Dosage: UNK
     Route: 065
  7. MEROPENEM [Concomitant]
     Indication: LUNG INFILTRATION
     Dosage: 60 MG/KG, QD
     Route: 042
  8. CAPTOPRIL [Concomitant]
     Indication: PRODUCT USED FOR UNKNOWN INDICATION
     Dosage: 0.25 MG/KG, QD
     Route: 065
  9. AMINESS [Concomitant]
     Indication: PRODUCT USED FOR UNKNOWN INDICATION
     Dosage: UNK
     Route: 065

REACTIONS (9)
  - Systemic inflammatory response syndrome [Recovered/Resolved]
  - Tonic clonic movements [Recovered/Resolved]
  - Cardiac arrest [Recovered/Resolved]
  - Hypertension [Recovered/Resolved]
  - Bradycardia [Recovered/Resolved]
  - Leukocytosis [Recovered/Resolved]
  - Lung infiltration [Recovered/Resolved]
  - Pyrexia [Recovered/Resolved]
  - Cyanosis [Recovered/Resolved]
